FAERS Safety Report 9196795 (Version 1)
Quarter: 2013Q1

REPORT INFORMATION
  Report Type: Spontaneous
  Country: US (occurrence: US)
  Receive Date: 20130328
  Receipt Date: 20130328
  Transmission Date: 20140127
  Serious: Yes (Hospitalization)
  Sender: FDA-Public Use
  Company Number: US-MYLANLABS-2013S1006535

PATIENT
  Age: 53 Year
  Sex: Female

DRUGS (13)
  1. DUONEB [Suspect]
     Indication: CHRONIC OBSTRUCTIVE PULMONARY DISEASE
  2. ADVAIR [Suspect]
     Indication: CHRONIC OBSTRUCTIVE PULMONARY DISEASE
     Dosage: 1 PUFF BID
     Route: 055
  3. THYROXINE SODIUM [Concomitant]
  4. OMEPRAZOLE [Concomitant]
  5. LOSARTAN POTASSIUM [Concomitant]
  6. HYDROCHLOROTHIAZIDE [Concomitant]
  7. SIMVASTATIN [Concomitant]
  8. MONTELUKAST SODIUM [Concomitant]
  9. IBUPROFEN [Concomitant]
  10. MULTIVITAMIN [Concomitant]
  11. MOMETASONE FUROATE [Concomitant]
  12. SALBUTAMOL SULFATE [Concomitant]
  13. PREDNISONE [Concomitant]

REACTIONS (3)
  - Chronic obstructive pulmonary disease [Unknown]
  - Glossitis [Unknown]
  - Glossodynia [Unknown]
